FAERS Safety Report 19708111 (Version 1)
Quarter: 2021Q3

REPORT INFORMATION
  Report Type: Spontaneous
  Country: US (occurrence: US)
  Receive Date: 20210817
  Receipt Date: 20210817
  Transmission Date: 20211014
  Serious: No
  Sender: FDA-Public Use
  Company Number: None

PATIENT
  Sex: Male
  Weight: 116.05 kg

DRUGS (10)
  1. EMERGEN C [Concomitant]
     Active Substance: MINERALS\VITAMINS
  2. VITAMIN D3 [Concomitant]
     Active Substance: CHOLECALCIFEROL
  3. IBUPROFEN. [Concomitant]
     Active Substance: IBUPROFEN
  4. OMEGA 3 FISH OIL [Concomitant]
     Active Substance: FISH OIL\OMEGA-3 FATTY ACIDS
  5. LOVENOX [Concomitant]
     Active Substance: ENOXAPARIN SODIUM
  6. THERA? M [Concomitant]
  7. TUMS [Concomitant]
     Active Substance: CALCIUM CARBONATE
  8. PROBIOTIC DAILY [Concomitant]
  9. TADALAFIL. [Concomitant]
     Active Substance: TADALAFIL
  10. CAPECITABINE. [Suspect]
     Active Substance: CAPECITABINE
     Indication: COLON CANCER
     Dosage: ?          OTHER FREQUENCY:BID 14/21 DAYS;?
     Route: 048
     Dates: start: 20210208

REACTIONS (2)
  - Stomatitis [None]
  - Rash [None]
